FAERS Safety Report 8934293 (Version 1)
Quarter: 2012Q4

REPORT INFORMATION
  Report Type: 
  Country: DE (occurrence: DE)
  Receive Date: 20121129
  Receipt Date: 20121129
  Transmission Date: 20130627
  Serious: Yes (Disabling)
  Sender: FDA-Public Use
  Company Number: DE-ASTRAZENECA-2012SE88482

PATIENT
  Age: 30591 Day
  Sex: Female

DRUGS (3)
  1. ATACAND PLUS [Suspect]
     Indication: HYPERTENSION
     Dosage: 16/12.5 MG
     Route: 048
     Dates: start: 2005, end: 2012
  2. ATACAND PLUS [Suspect]
     Indication: HYPERTENSION
     Dosage: 16/12.5 MG, 0.5 TABLET DAILY
     Route: 048
     Dates: start: 20120905, end: 20120926
  3. FALICARD [Concomitant]
     Route: 048

REACTIONS (4)
  - Angina pectoris [Recovered/Resolved]
  - Fatigue [Recovered/Resolved]
  - Listless [Recovered/Resolved]
  - Dizziness [Recovered/Resolved]
